FAERS Safety Report 9444324 (Version 1)
Quarter: 2013Q3

REPORT INFORMATION
  Report Type: Spontaneous
  Country: US (occurrence: None)
  Receive Date: 20130806
  Receipt Date: 20130806
  Transmission Date: 20140515
  Serious: Yes (Hospitalization)
  Sender: FDA-Public Use
  Company Number: None

PATIENT
  Age: 82 Year
  Sex: Male

DRUGS (2)
  1. DECITIBINE [Suspect]
     Indication: ACUTE MYELOID LEUKAEMIA
     Dosage: DECITIBINE DAILY X5 DAYS IV
     Route: 042
     Dates: start: 20130703
  2. CYTARABINE [Suspect]
     Indication: ACUTE MYELOID LEUKAEMIA
     Dosage: CYTARABINE DAILY X 5 DAYS IV
     Route: 042
     Dates: start: 20130708

REACTIONS (3)
  - Cerebrovascular accident [None]
  - Arteriosclerosis [None]
  - Platelet count decreased [None]
